FAERS Safety Report 4995049-4 (Version None)
Quarter: 2006Q2

REPORT INFORMATION
  Report Type: 
  Country: None (occurrence: None)
  Receive Date: 20060508
  Receipt Date: 20060503
  Transmission Date: 20061013
  Serious: Yes (Life-Threatening)
  Sender: FDA-Public Use
  Company Number: FR-GLAXOSMITHKLINE-B0422480A

PATIENT
  Age: 69 Year
  Sex: Female

DRUGS (6)
  1. CEFAZOLIN SODIUM [Suspect]
     Indication: DRUG USE FOR UNKNOWN INDICATION
     Route: 042
     Dates: start: 20050615, end: 20050615
  2. MIVACRON [Suspect]
     Route: 042
     Dates: start: 20050615, end: 20050615
  3. DIPRIVAN [Concomitant]
     Dosage: 10MGML UNKNOWN
     Route: 042
     Dates: start: 20050615, end: 20050615
  4. MIDAZOLAM HCL [Concomitant]
     Dosage: 5MG UNKNOWN
     Route: 042
     Dates: start: 20050615, end: 20050615
  5. SUFENTA [Concomitant]
     Route: 042
     Dates: start: 20050615, end: 20050615
  6. BETADINE [Concomitant]

REACTIONS (2)
  - ANAPHYLACTIC SHOCK [None]
  - TRYPTASE INCREASED [None]
